FAERS Safety Report 14778237 (Version 2)
Quarter: 2018Q2

REPORT INFORMATION
  Report Type: Spontaneous
  Country: GB (occurrence: GB)
  Receive Date: 20180419
  Receipt Date: 20180419
  Transmission Date: 20180711
  Serious: Yes (Other)
  Sender: FDA-Public Use
  Company Number: GB-PFM-2018-04658

PATIENT

DRUGS (1)
  1. NAVELBINE [Suspect]
     Active Substance: VINORELBINE TARTRATE
     Indication: PRODUCT USED FOR UNKNOWN INDICATION
     Dosage: 90 MG, ON DAY 1, DAY 8 AND DAY 15 THEN BREAK FOR 1 WEEK
     Route: 048
     Dates: start: 201701

REACTIONS (2)
  - Exposure via father [Unknown]
  - Off label use [Unknown]
